FAERS Safety Report 14904032 (Version 2)
Quarter: 2018Q2

REPORT INFORMATION
  Report Type: Report from Study
  Country: US (occurrence: US)
  Receive Date: 20180516
  Receipt Date: 20180604
  Transmission Date: 20180711
  Serious: Yes (Hospitalization)
  Sender: FDA-Public Use
  Company Number: US-ACTELION-A-NJ2018-172113

PATIENT
  Age: 27 Year
  Sex: Female

DRUGS (16)
  1. ATIVAN [Concomitant]
     Active Substance: LORAZEPAM
     Dosage: 1.5 MG, QPM
     Route: 048
     Dates: start: 20180308
  2. VITAMIN D3 [Concomitant]
     Active Substance: CHOLECALCIFEROL
     Dosage: 1 UNK, QD
     Route: 048
     Dates: start: 20170714
  3. 2-HYDROXYPROPYL-BETA-CYCLODEXTRIN [Concomitant]
     Dosage: 800 MG, EVERY OTHER WEEK
     Route: 042
     Dates: start: 20170714
  4. GABAPENTIN. [Concomitant]
     Active Substance: GABAPENTIN
     Dosage: 500 MG, TID
     Dates: start: 201709
  5. SINGULAIR [Concomitant]
     Active Substance: MONTELUKAST SODIUM
     Dosage: 1 UNK, QD
     Route: 048
     Dates: start: 20170714
  6. FLONASE [Concomitant]
     Active Substance: FLUTICASONE PROPIONATE
     Dosage: 2 SPRAY, PRN
     Route: 055
     Dates: start: 20170714
  7. GABAPENTIN. [Concomitant]
     Active Substance: GABAPENTIN
     Dosage: 500 MG, TID
     Route: 048
     Dates: start: 20180308
  8. 2-HYDROXYPROPYL-BETA-CYCLODEXTRIN [Concomitant]
     Dosage: 2500 MG/KG, UNK
     Route: 042
     Dates: start: 201504
  9. 2-HYDROXYPROPYL-BETA-CYCLODEXTRIN [Concomitant]
     Dosage: 900 MG IT OR 100 MG IO
     Route: 037
     Dates: start: 201505
  10. ACETAMINOPHEN. [Concomitant]
     Active Substance: ACETAMINOPHEN
     Dosage: 100 MG, TID
     Route: 048
     Dates: start: 20180308
  11. SUDAFED [Concomitant]
     Active Substance: PSEUDOEPHEDRINE HYDROCHLORIDE
     Dosage: 1 UNK, PRN
     Route: 048
     Dates: start: 20170714
  12. IBUPROFEN. [Concomitant]
     Active Substance: IBUPROFEN
     Dosage: 1 UNK, TID
     Route: 048
     Dates: start: 20180308
  13. AFRIN [Concomitant]
     Active Substance: OXYMETAZOLINE
     Dosage: 1 SPRAY, PRN
     Route: 055
     Dates: start: 20170714
  14. ZAVESCA [Suspect]
     Active Substance: MIGLUSTAT
     Indication: NIEMANN-PICK DISEASE
     Dosage: 200 MG, TID
     Route: 048
     Dates: start: 20170717
  15. ACETAMINOPHEN. [Concomitant]
     Active Substance: ACETAMINOPHEN
     Dosage: 1000 MG, TID
     Dates: start: 20170920
  16. LORAZEPAM. [Concomitant]
     Active Substance: LORAZEPAM
     Dosage: 1 MG, PRN
     Dates: start: 201709

REACTIONS (5)
  - Wound infection [Recovered/Resolved]
  - Central venous catheter removal [Recovered/Resolved]
  - Wound drainage [Recovered/Resolved]
  - Laceration [Recovered/Resolved]
  - Fall [Recovered/Resolved]

NARRATIVE: CASE EVENT DATE: 20180330
